FAERS Safety Report 7959121-9 (Version None)
Quarter: 2011Q4

REPORT INFORMATION
  Report Type: 
  Country: None (occurrence: None)
  Receive Date: 20111206
  Receipt Date: 20111116
  Transmission Date: 20120403
  Serious: No
  Sender: FDA-Public Use
  Company Number: US-ROXANE LABORATORIES, INC.-2011-RO-01659RO

PATIENT
  Sex: Female

DRUGS (2)
  1. MEGESTROL ACETATE [Suspect]
     Indication: DECREASED APPETITE
     Dosage: 20 ML
     Route: 048
     Dates: start: 20110809
  2. CHEMOTHERAPY [Concomitant]
     Indication: NEOPLASM MALIGNANT

REACTIONS (2)
  - LIQUID PRODUCT PHYSICAL ISSUE [None]
  - DRUG INEFFECTIVE [None]
